FAERS Safety Report 19158179 (Version 6)
Quarter: 2021Q3

REPORT INFORMATION
  Report Type: Report from Study
  Country: CA (occurrence: CA)
  Receive Date: 20210420
  Receipt Date: 20210714
  Transmission Date: 20211014
  Serious: Yes (Other)
  Sender: FDA-Public Use
  Company Number: CA-JNJFOC-20210428207

PATIENT
  Age: 17 Year
  Sex: Male
  Weight: 68 kg

DRUGS (3)
  1. REMICADE [Suspect]
     Active Substance: INFLIXIMAB
     Route: 042
     Dates: start: 20210512
  2. REMICADE [Suspect]
     Active Substance: INFLIXIMAB
     Indication: COLITIS ULCERATIVE
     Dosage: ON 13?APR?2021, PARTIAL MAYO WAS COMPLETED, AND THE PATIENT RECEIVED 08TH INFLIXIMAB INFUSION FOR DO
     Route: 042
     Dates: start: 20201111
  3. REMICADE [Suspect]
     Active Substance: INFLIXIMAB
     Route: 042

REACTIONS (7)
  - Haematochezia [Unknown]
  - General physical health deterioration [Unknown]
  - Gastrointestinal bacterial infection [Unknown]
  - Faeces soft [Unknown]
  - Drug level increased [Unknown]
  - Gastrointestinal inflammation [Unknown]
  - Frequent bowel movements [Unknown]

NARRATIVE: CASE EVENT DATE: 2021
